FAERS Safety Report 23544902 (Version 3)
Quarter: 2024Q3

REPORT INFORMATION
  Report Type: Report from Study
  Country: PH (occurrence: PH)
  Receive Date: 20240220
  Receipt Date: 20240719
  Transmission Date: 20241017
  Serious: Yes (Death, Hospitalization)
  Sender: OTSUKA
  Company Number: PH-OTSUKA-2024_003730

PATIENT
  Age: 62 Year
  Sex: Male

DRUGS (2)
  1. TOLVAPTAN [Suspect]
     Active Substance: TOLVAPTAN
     Indication: Cardiac disorder
     Dosage: 0.5 DF, TIW (15 MG HALF TABLET EVERY MWF
     Route: 048
     Dates: start: 20231206
  2. TOLVAPTAN [Suspect]
     Active Substance: TOLVAPTAN
     Indication: Emphysema

REACTIONS (5)
  - Myocardial infarction [Fatal]
  - Myocardial infarction [Unknown]
  - Angioplasty [Unknown]
  - Wrong technique in product usage process [Unknown]
  - Product use in unapproved indication [Unknown]

NARRATIVE: CASE EVENT DATE: 20231206
